FAERS Safety Report 4914536-8 (Version None)
Quarter: 2006Q1

REPORT INFORMATION
  Report Type: 
  Country: None (occurrence: None)
  Receive Date: 20060216
  Receipt Date: 20051117
  Transmission Date: 20060701
  Serious: Yes (Hospitalization, Other)
  Sender: FDA-Public Use
  Company Number: US-MERCK-0511USA03130

PATIENT
  Age: 63 Year
  Sex: Male

DRUGS (1)
  1. VIOXX [Suspect]
     Route: 048
     Dates: start: 20001201, end: 20020901

REACTIONS (12)
  - CARDIOMYOPATHY [None]
  - DYSLIPIDAEMIA [None]
  - ERECTILE DYSFUNCTION [None]
  - HYPERTENSION [None]
  - INCONTINENCE [None]
  - LIBIDO DISORDER [None]
  - MYOCARDIAL INFARCTION [None]
  - MYOCARDITIS [None]
  - NOCTURIA [None]
  - POLYURIA [None]
  - SLEEP DISORDER [None]
  - VENTRICULAR TACHYCARDIA [None]
